FAERS Safety Report 5091492-6 (Version None)
Quarter: 2006Q3

REPORT INFORMATION
  Report Type: 
  Country: None (occurrence: None)
  Receive Date: 20060824
  Receipt Date: 20060808
  Transmission Date: 20061208
  Serious: Yes (Hospitalization)
  Sender: FDA-Public Use
  Company Number: DSA_28589_2006

PATIENT
  Age: 17 Year
  Sex: Female

DRUGS (2)
  1. TAVOR [Suspect]
     Dosage: 1.5 MG ONCE PO
     Route: 048
     Dates: start: 20060808, end: 20060808
  2. BEER (ALCOHOL) [Suspect]
     Dosage: 10 BOTTLE ONCE PO
     Route: 048
     Dates: start: 20060808, end: 20060808

REACTIONS (4)
  - ACCIDENTAL OVERDOSE [None]
  - ALCOHOL USE [None]
  - FATIGUE [None]
  - MEDICATION ERROR [None]
